FAERS Safety Report 16309417 (Version 1)
Quarter: 2019Q2

REPORT INFORMATION
  Report Type: Spontaneous
  Country: US (occurrence: US)
  Receive Date: 20190514
  Receipt Date: 20190514
  Transmission Date: 20190711
  Serious: Yes (Other)
  Sender: FDA-Public Use
  Company Number: US-ROCHE-2314214

PATIENT
  Age: 58 Year
  Sex: Male
  Weight: 72.6 kg

DRUGS (25)
  1. AVASTIN [Suspect]
     Active Substance: BEVACIZUMAB
     Dosage: ONGOING: NO
     Route: 042
     Dates: start: 20190121
  2. IRINOTECAN [Concomitant]
     Active Substance: IRINOTECAN
     Indication: COLON CANCER
     Dosage: ONGOING: NO
     Route: 065
     Dates: start: 20171101
  3. LASIX [Concomitant]
     Active Substance: FUROSEMIDE
  4. NORCO [Concomitant]
     Active Substance: ACETAMINOPHEN\HYDROCODONE BITARTRATE
  5. EMLA [LIDOCAINE;PRILOCAINE] [Concomitant]
  6. ZYPREXA [Concomitant]
     Active Substance: OLANZAPINE
  7. AVASTIN [Suspect]
     Active Substance: BEVACIZUMAB
     Indication: COLON CANCER
     Dosage: 5 DOSES ;ONGOING: NO
     Route: 042
     Dates: start: 20171101
  8. OXALIPLATIN. [Concomitant]
     Active Substance: OXALIPLATIN
     Dosage: MOUTH ONCE DAILY BEFORE A MEAL
     Route: 065
  9. GLYCERINE [Concomitant]
     Active Substance: GLYCERIN
     Dosage: ONGOING: UNKNOWN
     Route: 025
     Dates: start: 20181112
  10. DECADRON [Concomitant]
     Active Substance: DEXAMETHASONE
     Route: 048
  11. ACTIGALL [Concomitant]
     Active Substance: URSODIOL
  12. AVASTIN [Suspect]
     Active Substance: BEVACIZUMAB
     Dosage: ONGOING: NO
     Route: 042
     Dates: start: 20190218
  13. LIORESAL [Concomitant]
     Active Substance: BACLOFEN
     Route: 065
  14. ATIVAN [Concomitant]
     Active Substance: LORAZEPAM
  15. PRILOSEC [Concomitant]
     Active Substance: OMEPRAZOLE MAGNESIUM
  16. ALDACTONE [Concomitant]
     Active Substance: SPIRONOLACTONE
  17. AVASTIN [Suspect]
     Active Substance: BEVACIZUMAB
     Dosage: ONGOING: NO
     Route: 042
     Dates: start: 20181112
  18. FOLINIC ACID [Concomitant]
     Active Substance: LEUCOVORIN
     Indication: COLON CANCER
     Dosage: ONGOING: NO
     Route: 065
     Dates: start: 20171101
  19. FLUOROURACIL. [Concomitant]
     Active Substance: FLUOROURACIL
     Indication: COLON CANCER
     Dosage: ONGOING: NO
     Route: 065
     Dates: start: 20171101
  20. NEULASTA [Concomitant]
     Active Substance: PEGFILGRASTIM
  21. MARINOL [Concomitant]
     Active Substance: DRONABINOL
     Route: 065
  22. HEPARIN [Concomitant]
     Active Substance: HEPARIN SODIUM
  23. PROCHLORPERAZINE. [Concomitant]
     Active Substance: PROCHLORPERAZINE
     Indication: NAUSEA
  24. GRANIX [Concomitant]
     Active Substance: TBO-FILGRASTIM
  25. SODIUM CHLORIDE. [Concomitant]
     Active Substance: SODIUM CHLORIDE

REACTIONS (10)
  - Thrombocytopenia [Unknown]
  - Platelet count decreased [Unknown]
  - Gastrooesophageal reflux disease [Unknown]
  - Blood albumin decreased [Unknown]
  - Ascites [Unknown]
  - Deafness [Unknown]
  - Alopecia [Unknown]
  - Liver function test increased [Unknown]
  - Neutropenia [Unknown]
  - Neuropathy peripheral [Unknown]
